FAERS Safety Report 19990638 (Version 5)
Quarter: 2023Q4

REPORT INFORMATION
  Report Type: Report from Study
  Country: US (occurrence: US)
  Receive Date: 20211025
  Receipt Date: 20231016
  Transmission Date: 20240109
  Serious: Yes (Hospitalization)
  Sender: FDA-Public Use
  Company Number: US-IPSEN BIOPHARMACEUTICALS, INC.-2021-25839

PATIENT
  Age: 75 Year
  Sex: Female

DRUGS (2)
  1. SOMATULINE DEPOT [Suspect]
     Active Substance: LANREOTIDE ACETATE
     Indication: Carcinoid syndrome
     Dosage: FIRST SHIPPED 3-JAN-2020, 120MG EVERY 4 WEEKS UNDER THE SKIN
     Route: 058
  2. SOMATULINE DEPOT [Suspect]
     Active Substance: LANREOTIDE ACETATE
     Indication: Neuroendocrine tumour
     Dosage: 120MG EVERY 28 DAYS
     Route: 058
     Dates: start: 20200224

REACTIONS (5)
  - Hip fracture [Unknown]
  - Product dose omission issue [Unknown]
  - Diarrhoea [Unknown]
  - Insurance issue [Unknown]
  - Inappropriate schedule of product administration [Unknown]

NARRATIVE: CASE EVENT DATE: 20211006
